FAERS Safety Report 6332860-1 (Version None)
Quarter: 2009Q3

REPORT INFORMATION
  Report Type: 
  Country: None (occurrence: None)
  Receive Date: 20090828
  Receipt Date: 20090810
  Transmission Date: 20100115
  Serious: No
  Sender: FDA-Public Use
  Company Number: US-B.I. PHARMACEUTICALS,INC./RIDGEFIELD-2009-BP-10069PF

PATIENT
  Sex: Female

DRUGS (9)
  1. SPIRIVA [Suspect]
  2. LANTUS [Suspect]
     Indication: TYPE 2 DIABETES MELLITUS
     Route: 058
     Dates: start: 20090430
  3. LANTUS [Suspect]
     Route: 058
     Dates: start: 20090501
  4. OPTICLIK [Suspect]
     Indication: TYPE 2 DIABETES MELLITUS
     Dates: start: 20090430
  5. GLYBURIDE [Suspect]
  6. LEVOTHYROXINE [Suspect]
  7. ADVAIR HFA [Suspect]
  8. AVANDIA [Suspect]
  9. OXYGEN [Concomitant]

REACTIONS (3)
  - CONTUSION [None]
  - INJECTION SITE HAEMORRHAGE [None]
  - NERVOUSNESS [None]
